FAERS Safety Report 18016554 (Version 1)
Quarter: 2020Q3

REPORT INFORMATION
  Report Type: Spontaneous
  Country: IT (occurrence: IT)
  Receive Date: 20200713
  Receipt Date: 20200713
  Transmission Date: 20201103
  Serious: Yes (Death, Other)
  Sender: FDA-Public Use
  Company Number: IT-SA-2020SA177247

PATIENT

DRUGS (8)
  1. TAXOTERE [Suspect]
     Active Substance: DOCETAXEL
     Indication: PROSTATE CANCER
     Dosage: 127 MG, QCY
     Route: 042
     Dates: start: 20200605, end: 20200605
  2. ZYLORIC [Concomitant]
     Active Substance: ALLOPURINOL
     Indication: GOUT
     Dosage: 300 MG
     Route: 048
  3. BRUFEN [IBUPROFEN] [Concomitant]
     Active Substance: IBUPROFEN
     Indication: BONE PAIN
     Dosage: 600 MG/M2, QD
     Route: 048
     Dates: start: 20200303
  4. DECAPEPTYL [TRIPTORELIN] [Concomitant]
     Active Substance: TRIPTORELIN
     Indication: PROSTATE CANCER METASTATIC
     Dosage: 11.25 MG, QCY
     Route: 030
     Dates: start: 20200410
  5. TRIATEC [RAMIPRIL] [Concomitant]
     Active Substance: RAMIPRIL
     Indication: HYPERTENSION
     Dosage: 5 MG
  6. FENPATCH [Concomitant]
     Indication: BONE PAIN
     Route: 062
     Dates: start: 20200301
  7. PARACETAMOL [Concomitant]
     Active Substance: ACETAMINOPHEN
     Dosage: 1000 MG, QD
     Route: 048
     Dates: start: 20200302
  8. OMEPRAZOLE. [Concomitant]
     Active Substance: OMEPRAZOLE
     Dosage: 20 ML, QD
     Route: 048

REACTIONS (6)
  - Pain [Fatal]
  - Acute kidney injury [Fatal]
  - Pollakiuria [Fatal]
  - Diarrhoea [Fatal]
  - Febrile neutropenia [Fatal]
  - Urine abnormality [Fatal]

NARRATIVE: CASE EVENT DATE: 20200611
